FAERS Safety Report 11742104 (Version 2)
Quarter: 2016Q1

REPORT INFORMATION
  Report Type: Spontaneous
  Country: US (occurrence: US)
  Receive Date: 20151116
  Receipt Date: 20160119
  Transmission Date: 20160525
  Serious: No
  Sender: FDA-Public Use
  Company Number: US-PFIZER INC-2015382613

PATIENT
  Age: 61 Year
  Sex: Female

DRUGS (1)
  1. DOXORUBICIN HCL [Suspect]
     Active Substance: DOXORUBICIN HYDROCHLORIDE
     Indication: BREAST CANCER METASTATIC
     Dosage: UNK, WEEKLY

REACTIONS (8)
  - Malaise [Unknown]
  - Hiatus hernia [Unknown]
  - Alopecia [Unknown]
  - Hot flush [Unknown]
  - Ulcer [Unknown]
  - Onychomadesis [Unknown]
  - Premature menopause [Unknown]
  - Pyrexia [Unknown]
